FAERS Safety Report 7503057-4 (Version None)
Quarter: 2011Q2

REPORT INFORMATION
  Report Type: 
  Country: None (occurrence: None)
  Receive Date: 20110525
  Receipt Date: 20110301
  Transmission Date: 20111010
  Serious: No
  Sender: FDA-Public Use
  Company Number: US-BAUSCH-2011BL001285

PATIENT
  Age: 6 Year
  Sex: Female
  Weight: 17 kg

DRUGS (2)
  1. CYCLOPENTOLATE HYDROCHLORIDE [Suspect]
     Indication: AMBLYOPIA
     Route: 047
     Dates: start: 20101220, end: 20110101
  2. ATROPINE SULFATE [Suspect]
     Indication: AMBLYOPIA
     Route: 047
     Dates: start: 20110201, end: 20110228

REACTIONS (2)
  - PAIN [None]
  - MUSCLE SPASMS [None]
